FAERS Safety Report 9732398 (Version 1)
Quarter: 2013Q4

REPORT INFORMATION
  Report Type: Spontaneous
  Country: US (occurrence: None)
  Receive Date: 20131204
  Receipt Date: 20131204
  Transmission Date: 20140711
  Serious: Yes (Life-Threatening)
  Sender: FDA-Public Use
  Company Number: None

PATIENT
  Age: 35 Year
  Sex: Female
  Weight: 96.16 kg

DRUGS (3)
  1. ORENCIA [Suspect]
     Dosage: 1ST DOSE
     Route: 042
     Dates: start: 20131126
  2. METHOTREXATE [Suspect]
     Indication: RHEUMATOID ARTHRITIS
     Dosage: MANY YEARS
     Route: 048
  3. METHOTREXATE [Suspect]
     Indication: SYSTEMIC LUPUS ERYTHEMATOSUS
     Dosage: MANY YEARS
     Route: 048

REACTIONS (1)
  - Herpes simplex meningitis [None]
